FAERS Safety Report 9490713 (Version 1)
Quarter: 2013Q3

REPORT INFORMATION
  Report Type: Spontaneous
  Country: US (occurrence: None)
  Receive Date: 20130828
  Receipt Date: 20130828
  Transmission Date: 20140515
  Serious: Yes (Hospitalization)
  Sender: FDA-Public Use
  Company Number: None

PATIENT
  Age: 62 Year
  Sex: Male
  Weight: 65.5 kg

DRUGS (2)
  1. DOXORUBICIN HYDROCHLORIDE [Suspect]
  2. METHOTREXATE [Suspect]

REACTIONS (5)
  - Headache [None]
  - Subdural haematoma [None]
  - Chest discomfort [None]
  - Atrial fibrillation [None]
  - Electrocardiogram ST segment depression [None]
